FAERS Safety Report 9733533 (Version 2)
Quarter: 2013Q4

REPORT INFORMATION
  Report Type: Spontaneous
  Country: JP (occurrence: JP)
  Receive Date: 20131205
  Receipt Date: 20131205
  Transmission Date: 20140711
  Serious: Yes (Life-Threatening, Hospitalization, Other)
  Sender: FDA-Public Use
  Company Number: JP-BAYER-2013-126823

PATIENT
  Age: 71 Year
  Sex: Male
  Weight: 60.32 kg

DRUGS (14)
  1. NEXAVAR [Suspect]
     Indication: HEPATOCELLULAR CARCINOMA
     Dosage: 400 MG, BID
     Route: 048
     Dates: start: 20131009, end: 20131011
  2. BLESIN [Suspect]
     Indication: PYREXIA
     Dosage: DAILY DOSE 25 MG
     Route: 048
     Dates: start: 20131010
  3. BLESIN [Suspect]
     Indication: PAIN
  4. VONAFEC [Suspect]
     Indication: PYREXIA
     Dosage: UNK
     Route: 054
     Dates: start: 20131015
  5. VONAFEC [Suspect]
     Indication: PAIN
  6. UROCALUN [Concomitant]
     Dosage: 225 MG, BID
     Route: 048
  7. CARBOCISTEINE [Concomitant]
     Dosage: 500 MG, BID
     Route: 048
  8. EMPYNASE P [Concomitant]
     Dosage: 1 DF, BID
     Route: 048
  9. NIZATORIC MARUKO [Concomitant]
     Dosage: 150 MG, BID
     Route: 048
  10. BROTIZOLAM [Concomitant]
     Dosage: 0.25 MG, HS
     Route: 048
  11. VESICARE [SOLIFENACIN SUCCINATE] [Concomitant]
     Dosage: DAILY DOSE 5 MG
     Route: 048
  12. HOKUNALIN [Concomitant]
     Dosage: 2 MG, QD
     Route: 062
  13. HIRUDOID [Concomitant]
     Dosage: DAILY DOSE 1 DF
     Route: 061
  14. KERATINAMIN [Concomitant]
     Dosage: DAILY DOSE 25 G
     Route: 061

REACTIONS (3)
  - Liver carcinoma ruptured [Recovered/Resolved]
  - Pyrexia [None]
  - Gastric ulcer haemorrhage [Recovered/Resolved]
